FAERS Safety Report 6658145-1 (Version None)
Quarter: 2010Q1

REPORT INFORMATION
  Report Type: 
  Country: None (occurrence: None)
  Receive Date: 20100330
  Receipt Date: 20100322
  Transmission Date: 20100710
  Serious: Yes (Other)
  Sender: FDA-Public Use
  Company Number: A0851390A

PATIENT
  Sex: Male

DRUGS (5)
  1. ADVAIR DISKUS 100/50 [Suspect]
     Indication: CHRONIC OBSTRUCTIVE PULMONARY DISEASE
     Dosage: 1PUFF TWICE PER DAY
     Route: 055
     Dates: start: 20090101
  2. LIPITOR [Suspect]
     Indication: DRUG USE FOR UNKNOWN INDICATION
  3. MEDICATION FOR FLUID RETENTION [Concomitant]
  4. PROSTATE MEDICATION [Concomitant]
  5. BLOOD PRESSURE MEDICATION [Concomitant]

REACTIONS (1)
  - HEPATIC ENZYME INCREASED [None]
